FAERS Safety Report 4755276-8 (Version None)
Quarter: 2005Q3

REPORT INFORMATION
  Report Type: 
  Country: None (occurrence: None)
  Receive Date: 20050829
  Receipt Date: 20050414
  Transmission Date: 20060218
  Serious: Yes (Death)
  Sender: FDA-Public Use
  Company Number: US-MERCK-0504USA02994

PATIENT
  Age: 78 Year
  Sex: Male
  Weight: 81 kg

DRUGS (9)
  1. VIOXX [Suspect]
     Indication: RHEUMATOID ARTHRITIS
     Route: 048
     Dates: start: 20010101
  2. VIOXX [Suspect]
     Route: 048
  3. VIOXX [Suspect]
     Route: 048
     Dates: end: 20040101
  4. COREG [Concomitant]
     Route: 065
     Dates: start: 19990101, end: 20040101
  5. GLYBURIDE [Concomitant]
     Route: 065
     Dates: start: 20010101, end: 20040101
  6. VALIUM [Concomitant]
     Route: 065
  7. METHOTREXATE [Concomitant]
     Route: 065
     Dates: start: 20010101, end: 20040101
  8. DIGOXIN [Concomitant]
     Route: 065
     Dates: start: 19990101, end: 20010101
  9. PRAVACHOL [Concomitant]
     Route: 065
     Dates: start: 19990101, end: 20010101

REACTIONS (5)
  - CARDIAC DISORDER [None]
  - CEREBROVASCULAR ACCIDENT [None]
  - DIABETES MELLITUS [None]
  - MYOCARDIAL INFARCTION [None]
  - PRESCRIBED OVERDOSE [None]
